FAERS Safety Report 25635859 (Version 2)
Quarter: 2025Q3

REPORT INFORMATION
  Report Type: Spontaneous
  Country: EU (occurrence: EU)
  Receive Date: 20250802
  Receipt Date: 20250808
  Transmission Date: 20251021
  Serious: Yes (Hospitalization)
  Sender: AUROBINDO
  Company Number: EU-AUROBINDO-AUR-APL-2025-039450

PATIENT
  Age: 55 Year
  Sex: Male

DRUGS (26)
  1. PIPERACILLIN AND TAZOBACTAM [Suspect]
     Active Substance: PIPERACILLIN SODIUM\TAZOBACTAM SODIUM
     Indication: COVID-19 pneumonia
     Dosage: 4.5 GRAM, 3 TIMES A DAY
     Route: 065
  2. DEXAMETHASONE [Suspect]
     Active Substance: DEXAMETHASONE
     Indication: COVID-19 pneumonia
     Dosage: 8 MILLIGRAM, 3 TIMES A DAY
     Route: 065
  3. DEXAMETHASONE [Suspect]
     Active Substance: DEXAMETHASONE
     Route: 065
     Dates: start: 202105
  4. METHYLPREDNISOLONE [Suspect]
     Active Substance: METHYLPREDNISOLONE
     Indication: COVID-19 pneumonia
     Dosage: 16 MILLIGRAM, ONCE A DAY
     Route: 065
     Dates: start: 201505
  5. METHYLPREDNISOLONE [Suspect]
     Active Substance: METHYLPREDNISOLONE
     Dosage: 8 MILLIGRAM, ONCE A DAY (AFTER 10 DAYS)
     Route: 065
  6. HALOPERIDOL [Suspect]
     Active Substance: HALOPERIDOL
     Indication: COVID-19
     Route: 065
  7. SERTACONAZOLE NITRATE [Suspect]
     Active Substance: SERTACONAZOLE NITRATE
     Indication: COVID-19
     Dosage: 50 MILLIGRAM, ONCE A DAY
     Route: 065
  8. SERTACONAZOLE NITRATE [Suspect]
     Active Substance: SERTACONAZOLE NITRATE
     Indication: Depression
  9. SERTACONAZOLE NITRATE [Suspect]
     Active Substance: SERTACONAZOLE NITRATE
     Indication: Anxiety
  10. PIPERACILLIN [Suspect]
     Active Substance: PIPERACILLIN
     Indication: COVID-19 pneumonia
     Route: 065
     Dates: start: 202105
  11. ENOXAPARIN SODIUM [Suspect]
     Active Substance: ENOXAPARIN SODIUM
     Indication: COVID-19 pneumonia
     Route: 065
     Dates: start: 202105
  12. QUETIAPINE [Suspect]
     Active Substance: QUETIAPINE
     Indication: COVID-19
     Dosage: 50 MILLIGRAM, ONCE A DAY
     Route: 065
  13. BISEPTOL [Concomitant]
     Active Substance: SULFAMETHOXAZOLE\TRIMETHOPRIM
     Indication: Product used for unknown indication
     Route: 065
     Dates: start: 20210520
  14. VORICONAZOLE [Concomitant]
     Active Substance: VORICONAZOLE
     Indication: Product used for unknown indication
     Route: 065
     Dates: start: 20210521
  15. AZITHROMYCIN [Concomitant]
     Active Substance: AZITHROMYCIN
     Indication: Product used for unknown indication
     Route: 065
  16. ITRACONAZOLE [Concomitant]
     Active Substance: ITRACONAZOLE
     Indication: Product used for unknown indication
     Route: 065
  17. ENOXAPARIN [Concomitant]
     Active Substance: ENOXAPARIN
     Indication: Product used for unknown indication
     Route: 065
  18. TELMISARTAN [Concomitant]
     Active Substance: TELMISARTAN
     Indication: COVID-19
     Route: 065
  19. Purinol [Concomitant]
     Indication: COVID-19
     Route: 065
  20. FENOFIBRATE [Concomitant]
     Active Substance: FENOFIBRATE
     Indication: COVID-19
     Route: 065
  21. PANTOPRAZOLE [Concomitant]
     Active Substance: PANTOPRAZOLE
     Indication: COVID-19
     Route: 065
  22. ATORVASTATIN [Concomitant]
     Active Substance: ATORVASTATIN
     Indication: COVID-19
     Route: 065
  23. QUETIAPINE [Concomitant]
     Active Substance: QUETIAPINE
     Indication: Depression
     Dosage: 50 MILLIGRAM, ONCE A DAY
     Route: 065
  24. QUETIAPINE [Concomitant]
     Active Substance: QUETIAPINE
     Indication: Anxiety
  25. TELMISARTAN AND HYDROCHLOROTHIAZIDE [Concomitant]
     Active Substance: HYDROCHLOROTHIAZIDE\TELMISARTAN
     Indication: Product used for unknown indication
     Route: 065
  26. TAZOBACTAM [Suspect]
     Active Substance: TAZOBACTAM
     Indication: COVID-19 pneumonia
     Dosage: 4.5 GRAM, 3 TIMES A DAY
     Route: 065
     Dates: start: 202105

REACTIONS (4)
  - Pneumocystis jirovecii infection [Unknown]
  - Fungal infection [Unknown]
  - Drug ineffective for unapproved indication [Unknown]
  - Product use in unapproved indication [Unknown]

NARRATIVE: CASE EVENT DATE: 20210501
